FAERS Safety Report 20182822 (Version 1)
Quarter: 2021Q4

REPORT INFORMATION
  Report Type: Spontaneous
  Country: DE (occurrence: DE)
  Receive Date: 20211214
  Receipt Date: 20211214
  Transmission Date: 20220304
  Serious: Yes (Hospitalization, Other)
  Sender: FDA-Public Use
  Company Number: DE-MYLANLABS-2021M1092767

PATIENT
  Age: 26 Year
  Sex: Female

DRUGS (1)
  1. FINGOLIMOD [Suspect]
     Active Substance: FINGOLIMOD
     Indication: Relapsing-remitting multiple sclerosis
     Dosage: UNK
     Route: 048

REACTIONS (6)
  - Rebound effect [Recovering/Resolving]
  - Tumefactive multiple sclerosis [Recovering/Resolving]
  - Hemiparesis [Recovering/Resolving]
  - Loss of personal independence in daily activities [Recovering/Resolving]
  - Psychomotor hyperactivity [Recovering/Resolving]
  - Lymphopenia [Recovering/Resolving]
